FAERS Safety Report 8221285-X (Version None)
Quarter: 2012Q1

REPORT INFORMATION
  Report Type: 
  Country: None (occurrence: None)
  Receive Date: 20120320
  Receipt Date: 20120314
  Transmission Date: 20120608
  Serious: Yes (Hospitalization)
  Sender: FDA-Public Use
  Company Number: PHEH2012US005148

PATIENT
  Sex: Male

DRUGS (1)
  1. TOBI [Suspect]
     Indication: CYSTIC FIBROSIS
     Dosage: 300 MG, BID FOR A CYCLE OF 28 DAYS

REACTIONS (3)
  - CONSTIPATION [None]
  - UPPER RESPIRATORY TRACT INFECTION [None]
  - GASTROINTESTINAL DISORDER [None]
